FAERS Safety Report 24620747 (Version 1)
Quarter: 2024Q4

REPORT INFORMATION
  Report Type: Spontaneous
  Country: GB (occurrence: GB)
  Receive Date: 20241114
  Receipt Date: 20241114
  Transmission Date: 20250114
  Serious: Yes (Life-Threatening, Disabling, Other)
  Sender: ALEXION PHARMACEUTICALS
  Company Number: None

PATIENT
  Age: 76 Year
  Weight: 78 kg

DRUGS (1)
  1. ONDEXXYA [Suspect]
     Active Substance: ANDEXANET ALFA
     Dosage: 400 MILLIGRAM, QD
     Route: 065

REACTIONS (3)
  - Medication error [Unknown]
  - Cerebrovascular accident [Not Recovered/Not Resolved]
  - Peripheral ischaemia [Not Recovered/Not Resolved]
